FAERS Safety Report 5378644-2 (Version None)
Quarter: 2007Q3

REPORT INFORMATION
  Report Type: 
  Country: None (occurrence: None)
  Receive Date: 20070702
  Receipt Date: 20070702
  Transmission Date: 20080115
  Serious: Yes (Other)
  Sender: FDA-Public Use
  Company Number: None

PATIENT
  Age: 19 Year
  Sex: Female
  Weight: 52.3 kg

DRUGS (15)
  1. GEODON [Suspect]
     Indication: PSYCHOTIC DISORDER
     Dosage: 80MG QAM + QHS PO
     Route: 048
     Dates: start: 20070416, end: 20070531
  2. BENOZYL PEROXIDE GEL [Concomitant]
  3. CITALOPRAM HYDROBROMIDE [Concomitant]
  4. LO/OVRAL [Concomitant]
  5. DOCUSATE SODIUM [Concomitant]
  6. FLOVENT [Concomitant]
  7. LITHIUM CITRATE [Concomitant]
  8. NICOTINE [Concomitant]
  9. SEREVENT [Concomitant]
  10. ACETAMINOPHEN [Concomitant]
  11. BISACODYL TABS [Concomitant]
  12. DIPHENHYDRAMINE HCL [Concomitant]
  13. HALOPERIDOL [Concomitant]
  14. LORAZEPAM [Concomitant]
  15. MAALOX FAST BLOCKER [Concomitant]

REACTIONS (1)
  - HYPERPROLACTINAEMIA [None]
